FAERS Safety Report 5409748-3 (Version None)
Quarter: 2007Q3

REPORT INFORMATION
  Report Type: 
  Country: None (occurrence: None)
  Receive Date: 20070809
  Receipt Date: 20070808
  Transmission Date: 20080115
  Serious: Yes (Hospitalization)
  Sender: FDA-Public Use
  Company Number: B0482357A

PATIENT
  Age: 15 Year
  Sex: Male

DRUGS (4)
  1. ARIXTRA [Suspect]
     Dosage: 7.5MG PER DAY
     Route: 058
     Dates: start: 20070627, end: 20070630
  2. PREVISCAN [Suspect]
     Dosage: 1TAB PER DAY
     Route: 048
     Dates: start: 20070625, end: 20070703
  3. LOVENOX [Suspect]
     Dates: start: 20070623, end: 20070629
  4. COMPRESSION STOCKINGS [Concomitant]
     Dates: start: 20070601

REACTIONS (2)
  - HYPOTENSION [None]
  - INTRA-ABDOMINAL HAEMORRHAGE [None]
